FAERS Safety Report 4659006-X (Version None)
Quarter: 2005Q2

REPORT INFORMATION
  Report Type: 
  Country: None (occurrence: None)
  Receive Date: 20050511
  Receipt Date: 20050421
  Transmission Date: 20051028
  Serious: Yes (Life-Threatening, Hospitalization, Other)
  Sender: FDA-Public Use
  Company Number: 05-03-0532

PATIENT
  Age: 14 Year
  Sex: Male
  Weight: 68.6 kg

DRUGS (15)
  1. LITHIUM SR [Suspect]
     Indication: DRUG USE FOR UNKNOWN INDICATION
     Dosage: 300MG THREE TIMES PER DAY
     Route: 048
     Dates: start: 20041117, end: 20041123
  2. LITHIUM CITRATE [Suspect]
     Indication: DRUG USE FOR UNKNOWN INDICATION
     Dosage: 300MG PER DAY
     Route: 048
     Dates: start: 20041124, end: 20050321
  3. HALOPERIDOL [Suspect]
     Indication: AGITATION
     Dosage: 10MG WEEKLY
     Route: 030
  4. CLOZAPINE [Suspect]
     Indication: SCHIZOAFFECTIVE DISORDER
     Route: 048
     Dates: start: 20050311, end: 20050322
  5. BENZTROPINE [Concomitant]
     Dosage: 2MG TWICE PER DAY
     Route: 048
     Dates: start: 20041227
  6. DDAVP [Concomitant]
     Dosage: .2MG AT NIGHT
     Route: 048
     Dates: start: 20041230
  7. GUANFACINE HCL [Concomitant]
     Dosage: 1MG THREE TIMES PER DAY
     Route: 048
     Dates: start: 20041221
  8. SYNTHROID [Concomitant]
     Dosage: 50MCG IN THE MORNING
     Route: 048
     Dates: start: 20041208
  9. VALPROIC ACID [Concomitant]
     Dosage: 500MG THREE TIMES PER DAY
     Route: 048
     Dates: start: 20041124
  10. DOCUSATE SODIUM [Concomitant]
     Dosage: 100MG TWICE PER DAY
     Route: 048
     Dates: start: 20050105
  11. DIPHENHYDRAMINE HCL [Concomitant]
     Indication: AGITATION
     Route: 030
  12. LORAZEPAM [Concomitant]
     Indication: AGITATION
     Dosage: 2MG WEEKLY
     Route: 030
  13. TRILEPTAL [Concomitant]
     Dosage: 300MG THREE TIMES PER DAY
     Route: 048
     Dates: start: 20050301, end: 20050321
  14. RISPERDAL [Concomitant]
     Dates: end: 20050321
  15. BROMOCRIPTINE [Concomitant]
     Dosage: 2.5MG THREE TIMES PER DAY
     Dates: start: 20050322

REACTIONS (18)
  - AGGRESSION [None]
  - BLOOD CREATINE PHOSPHOKINASE INCREASED [None]
  - BODY TEMPERATURE INCREASED [None]
  - CONFUSIONAL STATE [None]
  - DEVELOPMENTAL COORDINATION DISORDER [None]
  - DIFFICULTY IN WALKING [None]
  - DROOLING [None]
  - DRUG INTERACTION [None]
  - DYSPHAGIA [None]
  - DYSPNOEA [None]
  - EATING DISORDER [None]
  - HYPERVENTILATION [None]
  - LETHARGY [None]
  - NEUROLEPTIC MALIGNANT SYNDROME [None]
  - SOMNOLENCE [None]
  - UNRESPONSIVE TO VERBAL STIMULI [None]
  - URINARY INCONTINENCE [None]
  - WHITE BLOOD CELL COUNT INCREASED [None]
